FAERS Safety Report 6298486-3 (Version None)
Quarter: 2009Q3

REPORT INFORMATION
  Report Type: 
  Country: None (occurrence: None)
  Receive Date: 20090805
  Receipt Date: 20090729
  Transmission Date: 20100115
  Serious: Yes (Hospitalization)
  Sender: FDA-Public Use
  Company Number: US-GENENTECH-286602

PATIENT
  Sex: Male
  Weight: 56.3 kg

DRUGS (3)
  1. SOMATROPIN [Suspect]
     Indication: GROWTH HORMONE DEFICIENCY
     Dosage: 2.5 MG, 6/WEEK
     Route: 058
     Dates: start: 19970501
  2. SOMATROPIN [Suspect]
     Indication: PRADER-WILLI SYNDROME
  3. LEVOTHYROXINE SODIUM [Concomitant]
     Indication: DRUG USE FOR UNKNOWN INDICATION
     Dosage: 50 A?G, QD
     Dates: start: 20070401

REACTIONS (1)
  - VOMITING [None]
